FAERS Safety Report 10257818 (Version 1)
Quarter: 2014Q2

REPORT INFORMATION
  Report Type: Spontaneous
  Country: JP (occurrence: None)
  Receive Date: 20140620
  Receipt Date: 20140620
  Transmission Date: 20141212
  Serious: Yes (Other)
  Sender: FDA-Public Use
  Company Number: FK201402411

PATIENT
  Age: 32 Year
  Sex: Male

DRUGS (3)
  1. BLEOMYCIN (BLEOMYCIN) (BLEOMYCIN) [Suspect]
     Indication: TESTICULAR GERM CELL CANCER
  2. ETOPOSIDE (ETOPOSIDE) (ETOPOSIDE) [Suspect]
     Indication: TESTICULAR GERM CELL CANCER
  3. CISPLATIN (CISPLATIN) (CISPLATIN) [Suspect]
     Indication: TESTICULAR GERM CELL CANCER

REACTIONS (1)
  - Lung abscess [None]
